FAERS Safety Report 21890204 (Version 1)
Quarter: 2023Q1

REPORT INFORMATION
  Report Type: Spontaneous
  Country: US (occurrence: US)
  Receive Date: 20230120
  Receipt Date: 20230120
  Transmission Date: 20230417
  Serious: No
  Sender: FDA-Public Use
  Company Number: US-PFIZER INC-202300026510

PATIENT
  Age: 65 Year
  Sex: Female

DRUGS (7)
  1. PAXLOVID [Suspect]
     Active Substance: NIRMATRELVIR\RITONAVIR
     Indication: COVID-19 treatment
     Dosage: UNK
     Dates: start: 20230106, end: 20230111
  2. PAXLOVID [Suspect]
     Active Substance: NIRMATRELVIR\RITONAVIR
     Dosage: 2ND CYCLE
  3. METFORMIN [Concomitant]
     Active Substance: METFORMIN HYDROCHLORIDE
     Dosage: 500X2
     Dates: start: 201703
  4. AMLODIPINE [Concomitant]
     Active Substance: AMLODIPINE BESYLATE
     Dosage: UNK
     Dates: start: 202203
  5. LISINOPRIL [Concomitant]
     Active Substance: LISINOPRIL
     Dosage: UNK
     Dates: start: 201501
  6. ROSUVASTATIN [Concomitant]
     Active Substance: ROSUVASTATIN
     Dosage: UNK
     Dates: start: 201501
  7. EZETIMIBE [Concomitant]
     Active Substance: EZETIMIBE
     Dosage: UNK
     Dates: start: 201810

REACTIONS (4)
  - COVID-19 [Recovering/Resolving]
  - Disease recurrence [Recovering/Resolving]
  - Off label use [Unknown]
  - Product use issue [Unknown]

NARRATIVE: CASE EVENT DATE: 20230117
